FAERS Safety Report 8164920-7 (Version None)
Quarter: 2012Q1

REPORT INFORMATION
  Report Type: 
  Country: None (occurrence: None)
  Receive Date: 20120227
  Receipt Date: 20120217
  Transmission Date: 20120608
  Serious: No
  Sender: FDA-Public Use
  Company Number: US-BIOGENIDEC-2012BI006334

PATIENT
  Age: 44 Year
  Sex: Female

DRUGS (3)
  1. PEPSID [Concomitant]
     Indication: PROPHYLAXIS OF NAUSEA AND VOMITING
  2. TYSABRI [Suspect]
     Indication: MULTIPLE SCLEROSIS
     Route: 042
     Dates: start: 20110311
  3. ACETAMINOPHEN [Concomitant]
     Indication: PROPHYLAXIS

REACTIONS (6)
  - NAUSEA [None]
  - SWELLING FACE [None]
  - ROSACEA [None]
  - RASH MACULAR [None]
  - PRURITUS [None]
  - HEADACHE [None]
